FAERS Safety Report 20861908 (Version 1)
Quarter: 2022Q2

REPORT INFORMATION
  Report Type: Spontaneous
  Country: US (occurrence: None)
  Receive Date: 20220520
  Receipt Date: 20220520
  Transmission Date: 20220721
  Serious: Yes (Disabling)
  Sender: FDA-Public Use
  Company Number: None

PATIENT
  Age: 32 Year
  Sex: Female
  Weight: 56.25 kg

DRUGS (1)
  1. BUPRENORPHINE HYDROCHLORIDE [Suspect]
     Active Substance: BUPRENORPHINE HYDROCHLORIDE
     Indication: Substance abuse
     Dosage: FREQUENCY : TWICE A DAY;?
     Route: 060
     Dates: start: 20120501, end: 20220520

REACTIONS (2)
  - Dental caries [None]
  - Tooth injury [None]

NARRATIVE: CASE EVENT DATE: 20200507
